FAERS Safety Report 4781876-5 (Version None)
Quarter: 2005Q3

REPORT INFORMATION
  Report Type: 
  Country: None (occurrence: None)
  Receive Date: 20050927
  Receipt Date: 20050914
  Transmission Date: 20060218
  Serious: Yes (Other)
  Sender: FDA-Public Use
  Company Number: 2005130464

PATIENT
  Sex: Female
  Weight: 68.9467 kg

DRUGS (4)
  1. NORVASC [Suspect]
     Indication: HYPERTENSION
     Dosage: 5 MG ( 5 MG, DAILY INTERVAL: EVERY DAY)
     Dates: start: 20030101
  2. MOTRIN [Suspect]
     Indication: PAIN
     Dosage: 800 MG
  3. MOTRIN [Suspect]
     Indication: SWELLING
     Dosage: 800 MG
  4. NEXIUM [Concomitant]

REACTIONS (15)
  - ARTHROPATHY [None]
  - BACK DISORDER [None]
  - DIABETES MELLITUS NON-INSULIN-DEPENDENT [None]
  - DIZZINESS [None]
  - HEADACHE [None]
  - JOINT INJURY [None]
  - LOSS OF CONSCIOUSNESS [None]
  - MALAISE [None]
  - NECK INJURY [None]
  - OVERDOSE [None]
  - PAIN [None]
  - POLYTRAUMATISM [None]
  - ROAD TRAFFIC ACCIDENT [None]
  - SWELLING [None]
  - TREATMENT NONCOMPLIANCE [None]
